FAERS Safety Report 16779764 (Version 1)
Quarter: 2019Q3

REPORT INFORMATION
  Report Type: Other
  Country: GB (occurrence: GB)
  Receive Date: 20190906
  Receipt Date: 20190906
  Transmission Date: 20191005
  Serious: Yes (Disabling, Other)
  Sender: FDA-Public Use
  Company Number: GB-BRISTOL-MYERS SQUIBB COMPANY-BMS-2019-083608

PATIENT
  Age: 50 Year
  Sex: Female
  Weight: 64 kg

DRUGS (27)
  1. NORETHISTERONE ACETATE [Concomitant]
     Active Substance: NORETHINDRONE ACETATE
     Indication: FEELING HOT
     Dosage: 2 DOSAGE FORM PER DAY
     Route: 065
  2. ESTRADIOL. [Concomitant]
     Active Substance: ESTRADIOL
     Indication: NAUSEA
     Dosage: 1 DOSAGE FORM WITH NUMBER OF UNITS IN INTERVAL 2
     Route: 065
  3. POTASSIUM HYDROGEN CARBONATE [Concomitant]
     Indication: FLATULENCE
     Route: 065
  4. SIMVASTATIN. [Suspect]
     Active Substance: SIMVASTATIN
     Indication: PAIN IN EXTREMITY
     Route: 065
  5. LIPITOR [Suspect]
     Active Substance: ATORVASTATIN CALCIUM
     Indication: HYPERCHOLESTEROLAEMIA
     Dosage: 10 MILLIGRAM
     Route: 065
     Dates: start: 20061128, end: 20061128
  6. ESTRADIOL. [Concomitant]
     Active Substance: ESTRADIOL
     Indication: CHEST PAIN
     Dosage: 2 DOSAGE FORM PER DAY
     Route: 065
  7. ESTRADIOL. [Concomitant]
     Active Substance: ESTRADIOL
     Indication: FEELING HOT
     Route: 065
  8. ESTRADIOL. [Concomitant]
     Active Substance: ESTRADIOL
     Indication: ANXIETY
     Route: 065
  9. LIPITOR [Suspect]
     Active Substance: ATORVASTATIN CALCIUM
     Indication: PRODUCT USED FOR UNKNOWN INDICATION
     Dosage: 40 MILLIGRAM
     Route: 065
     Dates: start: 20030310, end: 200412
  10. NORETHISTERONE ACETATE [Concomitant]
     Active Substance: NORETHINDRONE ACETATE
     Indication: NAUSEA
     Dosage: 2 DOSAGE FORM
     Route: 065
  11. SIMVASTATIN. [Suspect]
     Active Substance: SIMVASTATIN
     Indication: PAIN IN EXTREMITY
     Route: 065
  12. FLUOXETINE [Concomitant]
     Active Substance: FLUOXETINE HYDROCHLORIDE
     Indication: ANXIETY
     Route: 065
  13. ROSUVASTATIN. [Concomitant]
     Active Substance: ROSUVASTATIN
     Indication: MYALGIA
     Route: 065
  14. LIPITOR [Suspect]
     Active Substance: ATORVASTATIN CALCIUM
     Indication: PRODUCT USED FOR UNKNOWN INDICATION
     Dosage: 10 MILLIGRAM
     Route: 065
     Dates: start: 19981113
  15. ESTROGENS CONJUGATED [Concomitant]
     Active Substance: ESTROGENS, CONJUGATED
     Indication: ANXIETY
     Route: 065
  16. MEDROXYPROGESTERONE ACETATE. [Concomitant]
     Active Substance: MEDROXYPROGESTERONE ACETATE
     Indication: ANXIETY
     Route: 065
  17. ESTRADIOL. [Concomitant]
     Active Substance: ESTRADIOL
     Indication: PANIC ATTACK
     Route: 065
  18. SIMVASTATIN. [Suspect]
     Active Substance: SIMVASTATIN
     Indication: MYALGIA
     Route: 065
  19. NORETHISTERONE ACETATE [Concomitant]
     Active Substance: NORETHINDRONE ACETATE
     Indication: PANIC ATTACK
     Route: 065
  20. LANSOPRAZOLE. [Concomitant]
     Active Substance: LANSOPRAZOLE
     Indication: DYSPEPSIA
     Route: 065
  21. SIMVASTATIN. [Suspect]
     Active Substance: SIMVASTATIN
     Indication: FATIGUE
     Dosage: 10 MILLIGRAM
     Route: 065
     Dates: start: 2003
  22. SIMVASTATIN. [Suspect]
     Active Substance: SIMVASTATIN
     Indication: ENDOSCOPY
     Route: 065
  23. PRAVASTATIN SODIUM. [Suspect]
     Active Substance: PRAVASTATIN SODIUM
     Indication: PRODUCT USED FOR UNKNOWN INDICATION
     Route: 065
  24. SIMVASTATIN. [Suspect]
     Active Substance: SIMVASTATIN
     Indication: MEMORY IMPAIRMENT
     Route: 065
  25. NORETHISTERONE ACETATE [Concomitant]
     Active Substance: NORETHINDRONE ACETATE
     Indication: CHEST PAIN
     Route: 065
  26. SODIUM ALGINATE [Concomitant]
     Active Substance: SODIUM ALGINATE
     Indication: ABDOMINAL DISTENSION
     Route: 065
  27. ROSUVASTATIN. [Concomitant]
     Active Substance: ROSUVASTATIN
     Indication: PAIN IN EXTREMITY
     Route: 065

REACTIONS (37)
  - Road traffic accident [Unknown]
  - Dry mouth [Unknown]
  - Fatigue [Unknown]
  - Unevaluable event [Unknown]
  - Influenza like illness [Unknown]
  - Post viral fatigue syndrome [Unknown]
  - Depression [Unknown]
  - Arthralgia [Not Recovered/Not Resolved]
  - Restless legs syndrome [Unknown]
  - Irritable bowel syndrome [Unknown]
  - Blepharitis [Unknown]
  - Joint injury [Unknown]
  - Myalgia [Unknown]
  - Asthenia [Unknown]
  - Drug ineffective [Unknown]
  - Hypersensitivity [Unknown]
  - Gastroenteritis [Recovered/Resolved]
  - Conjunctivitis [Unknown]
  - Musculoskeletal pain [Unknown]
  - Viral infection [Unknown]
  - Pain in extremity [Unknown]
  - Urticaria [Unknown]
  - Muscle atrophy [Unknown]
  - Upper respiratory tract infection [Unknown]
  - Photosensitivity reaction [Unknown]
  - Blood cholesterol increased [Unknown]
  - Abdominal pain upper [Unknown]
  - Menopausal symptoms [Unknown]
  - Dysgeusia [Unknown]
  - Angioedema [Unknown]
  - Memory impairment [Unknown]
  - Salivary hypersecretion [Unknown]
  - Muscle injury [Recovering/Resolving]
  - Arthritis [Unknown]
  - Dyspepsia [Unknown]
  - Anxiety [Unknown]
  - Gastric ulcer [Unknown]

NARRATIVE: CASE EVENT DATE: 199904
